FAERS Safety Report 8505106-3 (Version None)
Quarter: 2012Q2

REPORT INFORMATION
  Report Type: 
  Country: None (occurrence: None)
  Receive Date: 20120405
  Receipt Date: 20100616
  Transmission Date: 20120825
  Serious: Yes (Other)
  Sender: FDA-Public Use
  Company Number: PHHY2010US38277

PATIENT
  Age: 75 Year
  Sex: Male
  Weight: 70.3 kg

DRUGS (5)
  1. LEXAPRO [Concomitant]
  2. OMEPRAZOLE [Concomitant]
  3. CALCIUM CARBONATE [Concomitant]
  4. RECLAST [Suspect]
     Indication: OSTEOPOROSIS
     Dosage: 05 MG X1, INTRAVENOUS
     Route: 042
     Dates: start: 20100607, end: 20100607
  5. ALBUTEROL [Concomitant]

REACTIONS (4)
  - EYE INFLAMMATION [None]
  - RHINORRHOEA [None]
  - OCULAR HYPERAEMIA [None]
  - EYE PAIN [None]
